FAERS Safety Report 7231585-8 (Version None)
Quarter: 2011Q1

REPORT INFORMATION
  Report Type: 
  Country: None (occurrence: None)
  Receive Date: 20110118
  Receipt Date: 20110111
  Transmission Date: 20110831
  Serious: Yes (Hospitalization, Other)
  Sender: FDA-Public Use
  Company Number: US-CEPHALON-2011000178

PATIENT
  Sex: Male

DRUGS (4)
  1. MIRAPEX [Concomitant]
     Dates: end: 20091201
  2. PROVIGIL [Suspect]
     Indication: SLEEP APNOEA SYNDROME
     Dates: end: 20090101
  3. PROVIGIL [Suspect]
     Indication: PERIODIC LIMB MOVEMENT DISORDER
  4. ZYPREXA [Concomitant]
     Dates: end: 20091201

REACTIONS (11)
  - SUICIDAL IDEATION [None]
  - BIPOLAR DISORDER [None]
  - DELAYED SLEEP PHASE [None]
  - DEPRESSION [None]
  - POST-TRAUMATIC STRESS DISORDER [None]
  - HYPERTENSION [None]
  - LEFT VENTRICULAR HYPERTROPHY [None]
  - METABOLIC SYNDROME [None]
  - WEIGHT INCREASED [None]
  - DILATATION ATRIAL [None]
  - PSYCHOTIC DISORDER [None]
